FAERS Safety Report 8455097-9 (Version None)
Quarter: 2012Q2

REPORT INFORMATION
  Report Type: 
  Country: None (occurrence: None)
  Receive Date: 20120621
  Receipt Date: 20120612
  Transmission Date: 20120825
  Serious: Yes (Hospitalization, Other)
  Sender: FDA-Public Use
  Company Number: HU-ASTRAZENECA-2012SE26009

PATIENT
  Age: 26176 Day
  Sex: Female

DRUGS (12)
  1. POTASSIUM ACETATE [Concomitant]
     Indication: HYPERTENSION
     Route: 048
  2. ASPIRIN [Suspect]
     Route: 048
  3. ROSUVASTATIN [Concomitant]
     Indication: HYPERLIPIDAEMIA
     Route: 048
  4. PLACEBO [Suspect]
     Indication: CORONARY ARTERY DISEASE
     Route: 048
     Dates: start: 20120412
  5. FUROSEMIDE [Concomitant]
     Indication: CARDIAC FAILURE CONGESTIVE
     Route: 048
  6. PANTOPRAZOLE [Concomitant]
     Indication: GASTROOESOPHAGEAL REFLUX DISEASE
     Route: 048
  7. BISOPROLOL FUMARATE [Concomitant]
     Indication: MYOCARDIAL ISCHAEMIA
     Route: 048
  8. METFORMIN HCL [Concomitant]
     Indication: TYPE 2 DIABETES MELLITUS
     Route: 048
  9. GLICLAZIDE [Concomitant]
     Indication: TYPE 2 DIABETES MELLITUS
     Route: 048
     Dates: end: 20120414
  10. RAMIPRIL [Concomitant]
     Indication: HYPERTENSION
     Route: 048
  11. AZD6140 [Suspect]
     Indication: CORONARY ARTERY DISEASE
     Route: 048
     Dates: start: 20110421
  12. ACARBOSE [Concomitant]
     Indication: TYPE 2 DIABETES MELLITUS
     Route: 048

REACTIONS (1)
  - IRON DEFICIENCY ANAEMIA [None]
